FAERS Safety Report 9664015 (Version 1)
Quarter: 2013Q4

REPORT INFORMATION
  Report Type: Spontaneous
  Country: JP (occurrence: JP)
  Receive Date: 20131101
  Receipt Date: 20131101
  Transmission Date: 20140711
  Serious: Yes (Hospitalization)
  Sender: FDA-Public Use
  Company Number: JP-SA-2013SA109106

PATIENT
  Age: 74 Year
  Sex: Female

DRUGS (5)
  1. WARFARIN SODIUM [Suspect]
     Indication: PRODUCT USED FOR UNKNOWN INDICATION
     Route: 065
  2. AMARYL [Interacting]
     Indication: PRODUCT USED FOR UNKNOWN INDICATION
     Route: 065
  3. FLORID [Interacting]
     Indication: ORAL CANDIDIASIS
     Route: 048
  4. FLORID [Interacting]
     Indication: ORAL CANDIDIASIS
     Route: 048
  5. KENALOG [Concomitant]
     Indication: ORAL CANDIDIASIS

REACTIONS (5)
  - Subdural haematoma [Recovered/Resolved]
  - Drug interaction [Unknown]
  - International normalised ratio increased [Recovered/Resolved]
  - Headache [Recovered/Resolved]
  - Hypoglycaemia [Recovered/Resolved]
